FAERS Safety Report 11929974 (Version 1)
Quarter: 2016Q1

REPORT INFORMATION
  Report Type: Spontaneous
  Country: FR (occurrence: FR)
  Receive Date: 20160120
  Receipt Date: 20160120
  Transmission Date: 20160526
  Serious: No
  Sender: FDA-Public Use
  Company Number: FR-JNJFOC-20160113234

PATIENT
  Age: 80 Year
  Sex: Male

DRUGS (15)
  1. DAFALGAN [Concomitant]
     Active Substance: ACETAMINOPHEN
     Route: 065
  2. METFORMINE [Concomitant]
     Active Substance: METFORMIN HYDROCHLORIDE
     Route: 065
  3. CYMBALTA [Concomitant]
     Active Substance: DULOXETINE HYDROCHLORIDE
     Route: 065
  4. LOVENOX [Concomitant]
     Active Substance: ENOXAPARIN SODIUM
     Route: 065
  5. DUROGESIC [Suspect]
     Active Substance: FENTANYL
     Indication: PRODUCT USED FOR UNKNOWN INDICATION
     Route: 062
     Dates: start: 20140917, end: 20140922
  6. CEFTAZIDIME. [Concomitant]
     Active Substance: CEFTAZIDIME
     Route: 065
  7. DUROGESIC [Suspect]
     Active Substance: FENTANYL
     Indication: PRODUCT USED FOR UNKNOWN INDICATION
     Route: 062
     Dates: start: 20140924
  8. DIFFU K [Concomitant]
     Active Substance: POTASSIUM CHLORIDE
     Route: 065
  9. GALVUS [Concomitant]
     Active Substance: VILDAGLIPTIN
     Route: 065
  10. GLICLAZIDE [Concomitant]
     Active Substance: GLICLAZIDE
     Route: 065
  11. GABAPENTINE [Concomitant]
     Active Substance: GABAPENTIN
     Route: 065
  12. MODOPAR [Concomitant]
     Active Substance: BENSERAZIDE HYDROCHLORIDE\LEVODOPA
     Route: 065
  13. DIGOXIN NATIVELLE [Concomitant]
     Active Substance: DIGOXIN
     Route: 065
  14. LASILIX [Concomitant]
     Active Substance: FUROSEMIDE
     Route: 065
  15. CANCIDAS [Concomitant]
     Active Substance: CASPOFUNGIN ACETATE
     Route: 065

REACTIONS (2)
  - Drug prescribing error [Unknown]
  - Inappropriate schedule of drug administration [Unknown]

NARRATIVE: CASE EVENT DATE: 20140917
